FAERS Safety Report 16713984 (Version 3)
Quarter: 2019Q3

REPORT INFORMATION
  Report Type: Spontaneous
  Country: JP (occurrence: JP)
  Receive Date: 20190819
  Receipt Date: 20190920
  Transmission Date: 20191004
  Serious: Yes (Hospitalization, Other)
  Sender: FDA-Public Use
  Company Number: JP-GLAXOSMITHKLINE-JP2019JPN148629

PATIENT
  Age: 10 Month
  Sex: Male
  Weight: 9 kg

DRUGS (9)
  1. LAMICTAL [Suspect]
     Active Substance: LAMOTRIGINE
     Dosage: 4 MG, BID
     Route: 048
     Dates: start: 20190803, end: 20190809
  2. LAMICTAL [Suspect]
     Active Substance: LAMOTRIGINE
     Dosage: 2.5 MG, QD
     Route: 048
     Dates: start: 20190712, end: 20190725
  3. LAMICTAL [Suspect]
     Active Substance: LAMOTRIGINE
     Indication: EPILEPSY
     Dosage: 1.2 MG, QD
     Route: 048
     Dates: start: 20190628, end: 20190711
  4. LAMICTAL [Suspect]
     Active Substance: LAMOTRIGINE
     Dosage: UNK, QD
     Route: 048
     Dates: start: 20190726, end: 20190802
  5. LAMICTAL [Suspect]
     Active Substance: LAMOTRIGINE
     Dosage: 4 MG, BID
     Route: 048
     Dates: start: 20190815
  6. ZONISAMIDE. [Concomitant]
     Active Substance: ZONISAMIDE
     Indication: EPILEPSY
     Dosage: UNK
  7. E KEPPRA [Concomitant]
     Active Substance: LEVETIRACETAM
     Indication: EPILEPSY
     Dosage: UNK
  8. VALPROATE SODIUM. [Concomitant]
     Active Substance: VALPROATE SODIUM
     Indication: EPILEPSY
     Dosage: UNK
     Dates: start: 201908
  9. LAMICTAL [Suspect]
     Active Substance: LAMOTRIGINE
     Dosage: UNK UNK, QD
     Route: 048
     Dates: start: 20190810, end: 20190814

REACTIONS (4)
  - Off label use [Unknown]
  - Therapeutic product effect incomplete [Unknown]
  - Product administered to patient of inappropriate age [Unknown]
  - Infantile spasms [Unknown]
